FAERS Safety Report 23973971 (Version 1)
Quarter: 2024Q2

REPORT INFORMATION
  Report Type: Spontaneous
  Country: CN (occurrence: CN)
  Receive Date: 20240613
  Receipt Date: 20240613
  Transmission Date: 20240715
  Serious: Yes (Hospitalization)
  Sender: FDA-Public Use
  Company Number: None

PATIENT
  Age: 30 Year
  Sex: Female
  Weight: 74 kg

DRUGS (2)
  1. TRESIBA [Suspect]
     Active Substance: INSULIN DEGLUDEC
     Indication: Type 2 diabetes mellitus
     Dosage: 16 IU, QD
     Route: 058
     Dates: start: 20240420
  2. NOVORAPID [Suspect]
     Active Substance: INSULIN ASPART
     Indication: Type 2 diabetes mellitus
     Dosage: 7IU IN THE MORNING, 10-13IU AT NOON AND 10-13IU IN THE EVENING, TID
     Route: 058
     Dates: start: 20240420

REACTIONS (6)
  - Fall [Recovering/Resolving]
  - Confusional state [Recovering/Resolving]
  - Skin abrasion [Recovering/Resolving]
  - Loss of consciousness [Recovering/Resolving]
  - Blood glucose decreased [Recovering/Resolving]
  - Maternal exposure during pregnancy [Unknown]

NARRATIVE: CASE EVENT DATE: 20240420
